FAERS Safety Report 4504199-8 (Version None)
Quarter: 2004Q4

REPORT INFORMATION
  Report Type: 
  Country: None (occurrence: None)
  Receive Date: 20041117
  Receipt Date: 20041104
  Transmission Date: 20050328
  Serious: Yes (Other)
  Sender: FDA-Public Use
  Company Number: 2004087767

PATIENT
  Age: 40 Year
  Sex: Female
  Weight: 68.0396 kg

DRUGS (1)
  1. BENADRYL ALLERGY SINUS HEADACHE (DIPHENHYDRMAINE, PARACETAMOL, PSEUDOE [Suspect]
     Indication: HYPERSENSITIVITY
     Dosage: ONE CAPLET QD-BID, ORAL
     Route: 048

REACTIONS (3)
  - DRUG DEPENDENCE [None]
  - PHOTOSENSITIVITY REACTION [None]
  - RASH MACULAR [None]
